FAERS Safety Report 17711736 (Version 1)
Quarter: 2020Q2

REPORT INFORMATION
  Report Type: Spontaneous
  Country: US (occurrence: US)
  Receive Date: 20200427
  Receipt Date: 20200427
  Transmission Date: 20200714
  Serious: Yes (Other)
  Sender: FDA-Public Use
  Company Number: US-SA-2020SA103219

PATIENT
  Sex: Male

DRUGS (1)
  1. GOLD BOND MEDICATED FOOT [Suspect]
     Active Substance: MENTHOL

REACTIONS (13)
  - Peritoneal mesothelioma malignant [Unknown]
  - Somnolence [Unknown]
  - Lethargy [Unknown]
  - Fatigue [Unknown]
  - Pain [Unknown]
  - Exposure to chemical pollution [Unknown]
  - Discomfort [Unknown]
  - Occupational exposure to product [Unknown]
  - Decreased appetite [Unknown]
  - Dyspnoea [Unknown]
  - Dysphagia [Unknown]
  - Weight decreased [Unknown]
  - Emotional distress [Unknown]

NARRATIVE: CASE EVENT DATE: 201905
